FAERS Safety Report 17454117 (Version 1)
Quarter: 2020Q1

REPORT INFORMATION
  Report Type: Spontaneous
  Country: US (occurrence: US)
  Receive Date: 20200211
  Receipt Date: 20200211
  Transmission Date: 20200409
  Serious: No
  Sender: FDA-Public Use
  Company Number: None

PATIENT
  Sex: Female

DRUGS (1)
  1. SOMATULINE DEPOT [Suspect]
     Active Substance: LANREOTIDE ACETATE
     Indication: NEUROENDOCRINE TUMOUR
     Dosage: ?          OTHER STRENGTH:120MG/.5M;OTHER FREQUENCY:Q4W;?
     Route: 058
     Dates: start: 20170818

REACTIONS (2)
  - Depression [None]
  - Anxiety [None]
